FAERS Safety Report 15206638 (Version 16)
Quarter: 2023Q1

REPORT INFORMATION
  Report Type: Report from Study
  Country: US (occurrence: US)
  Receive Date: 20180727
  Receipt Date: 20230331
  Transmission Date: 20230417
  Serious: No
  Sender: FDA-Public Use
  Company Number: US-PFIZER INC-2018291523

PATIENT
  Sex: Female
  Weight: 100 kg

DRUGS (5)
  1. LYRICA [Suspect]
     Active Substance: PREGABALIN
     Indication: Neuropathy peripheral
     Dosage: UNK
     Route: 065
     Dates: start: 201601
  2. LYRICA [Suspect]
     Active Substance: PREGABALIN
     Indication: Pain
     Dosage: 100 MILLIGRAM, BID (100 MG, 2X/DAY)
     Route: 048
     Dates: end: 20180704
  3. LYRICA [Suspect]
     Active Substance: PREGABALIN
     Indication: Diabetic neuropathy
     Dosage: 100 MILLIGRAM, BID (100 MG, 2X/DAY)
     Route: 048
  4. LYRICA [Suspect]
     Active Substance: PREGABALIN
     Indication: Diabetes mellitus
     Dosage: 100 MILLIGRAM, QID (100 MG, 4X/DAY)
     Route: 048
     Dates: start: 20210514
  5. LYRICA [Suspect]
     Active Substance: PREGABALIN
     Dosage: 100 MILLIGRAM, QID (100 MG, 4X/DAY)
     Route: 048

REACTIONS (10)
  - Flushing [Unknown]
  - Emotional disorder [Unknown]
  - Affect lability [Unknown]
  - Rotator cuff syndrome [Unknown]
  - Nerve injury [Unknown]
  - Limb injury [Unknown]
  - Visual impairment [Unknown]
  - Insomnia [Unknown]
  - Withdrawal syndrome [Unknown]
  - Off label use [Unknown]
